FAERS Safety Report 25908383 (Version 1)
Quarter: 2025Q4

REPORT INFORMATION
  Report Type: Spontaneous
  Country: US (occurrence: US)
  Receive Date: 20251010
  Receipt Date: 20251010
  Transmission Date: 20260118
  Serious: No
  Sender: SPROUT PHARMACEUTICALS
  Company Number: US-Sprout Pharmaceuticals, Inc.-2024SP000273

PATIENT

DRUGS (2)
  1. ADDYI [Suspect]
     Active Substance: FLIBANSERIN
     Indication: Sexual dysfunction
     Dosage: 100 MILLIGRAM, DAILY AT BEDTIME
     Route: 048
     Dates: start: 202409
  2. ATOMOXETINE [Concomitant]
     Active Substance: ATOMOXETINE
     Indication: Attention deficit hyperactivity disorder
     Dosage: UNK UNK

REACTIONS (3)
  - Vomiting [Unknown]
  - Gait disturbance [Unknown]
  - Dizziness [Unknown]
